FAERS Safety Report 6531343-3 (Version None)
Quarter: 2010Q1

REPORT INFORMATION
  Report Type: 
  Country: None (occurrence: None)
  Receive Date: 20100108
  Receipt Date: 20090921
  Transmission Date: 20100710
  Serious: No
  Sender: FDA-Public Use
  Company Number: A0808774A

PATIENT
  Age: 49 Year
  Sex: Female

DRUGS (2)
  1. TYKERB [Suspect]
     Indication: DRUG USE FOR UNKNOWN INDICATION
     Dosage: 5TABS PER DAY
     Dates: start: 20090909
  2. XELODA [Suspect]
     Indication: DRUG USE FOR UNKNOWN INDICATION
     Dates: start: 20090910

REACTIONS (2)
  - FATIGUE [None]
  - SKIN DISCOLOURATION [None]
